FAERS Safety Report 17665060 (Version 6)
Quarter: 2020Q3

REPORT INFORMATION
  Report Type: Spontaneous
  Country: DE (occurrence: DE)
  Receive Date: 20200414
  Receipt Date: 20200904
  Transmission Date: 20201102
  Serious: Yes (Life-Threatening, Hospitalization, Other)
  Sender: FDA-Public Use
  Company Number: DE-ACCORD-178624

PATIENT
  Age: 69 Year
  Sex: Male
  Weight: 77 kg

DRUGS (21)
  1. JANUMET [Interacting]
     Active Substance: METFORMIN HYDROCHLORIDE\SITAGLIPTIN PHOSPHATE
     Indication: DIABETES MELLITUS
     Dosage: 1?0?1   50/1000MG
     Dates: start: 201808
  2. SIMVASTATIN. [Interacting]
     Active Substance: SIMVASTATIN
     Indication: DIABETES MELLITUS
     Dosage: 10 MILLIGRAM, DAILY
     Route: 065
     Dates: start: 201808
  3. JANUMET [Interacting]
     Active Substance: METFORMIN HYDROCHLORIDE\SITAGLIPTIN PHOSPHATE
     Indication: DIABETES MELLITUS
     Dosage: 1 DOSAGE FORM, Q12H
     Route: 065
     Dates: start: 201808
  4. SIMVASTATIN. [Interacting]
     Active Substance: SIMVASTATIN
     Indication: CORONARY ARTERY DISEASE
     Dosage: 40 MILLIGRAM, DAILY,0?0?1
     Route: 048
     Dates: start: 20110506
  5. ALLOPURINOL. [Suspect]
     Active Substance: ALLOPURINOL
     Indication: GOUT
     Dosage: ALLOPURINOL 100 MG, DAILY
     Dates: start: 201808
  6. INSULIN GLARGINE [Interacting]
     Active Substance: INSULIN GLARGINE
     Indication: DIABETES MELLITUS
     Dosage: 15 IU IN THE EVENING
     Dates: start: 201808
  7. TORASEMIDE/TORASEMIDE SODIUM [Interacting]
     Active Substance: TORSEMIDE
     Indication: RENAL DISORDER
     Dosage: 1?0?0 STRENGTH 10 MG,  QD IN MORNING, DAILY,1?0?0
     Dates: start: 201808
  8. AMLODIPINE [Interacting]
     Active Substance: AMLODIPINE BESYLATE
     Indication: HYPERTENSION
     Dosage: 1?0?1 STRENGTH 5 MG
     Dates: start: 201808
  9. RAMIPRIL. [Interacting]
     Active Substance: RAMIPRIL
     Indication: HYPERTENSION
     Dosage: 1?0?1 STRENGTH 5 MG
     Route: 065
     Dates: start: 201808
  10. AVASTIN [Interacting]
     Active Substance: BEVACIZUMAB
     Indication: DIABETIC RETINAL OEDEMA
     Dosage: INJECT INTO THE RIGHT EYE AT 13.30
     Route: 031
     Dates: start: 20200115
  11. SIMVASTATIN. [Interacting]
     Active Substance: SIMVASTATIN
     Indication: HYPERTENSION
     Dosage: 50 MILLIGRAM, DAILY
     Route: 065
     Dates: start: 201808
  12. LEVETIRACETAM. [Concomitant]
     Active Substance: LEVETIRACETAM
     Dosage: STRENGTH: 500 MG; 1?0?1
  13. SIMVASTATIN. [Interacting]
     Active Substance: SIMVASTATIN
     Indication: PRODUCT USED FOR UNKNOWN INDICATION
     Dosage: 15 INTERNATIONAL UNIT, DAILY
     Route: 065
     Dates: start: 201808
  14. ELIQUIS [Interacting]
     Active Substance: APIXABAN
     Indication: ATRIAL FIBRILLATION
     Dosage: 1?0?1 STRENGTH 5 MG
     Dates: start: 201808
  15. SPIRONOLACTONE. [Interacting]
     Active Substance: SPIRONOLACTONE
     Indication: CARDIAC DISORDER
     Dosage: 1?0?0 STRENGTH 50 MG,  QD, IN MORNING,??ALSO RECEIVED ON 06?MAY?2011
     Route: 048
     Dates: start: 20110506
  16. SIMVASTATIN. [Interacting]
     Active Substance: SIMVASTATIN
     Indication: CORONARY ARTERY DISEASE
     Dosage: 0?0?1 40 MG, ALSO RECEIVED ON 06?MAY?2011
     Route: 048
     Dates: start: 201808
  17. MILGAMMA PROTEKT [Interacting]
     Active Substance: BENFOTIAMINE
     Indication: CARDIOVASCULAR DISORDER
     Dosage: 1 STRENGTH 300 MG
     Route: 065
     Dates: start: 201808
  18. ELIQUIS [Interacting]
     Active Substance: APIXABAN
     Indication: ATRIAL FIBRILLATION
     Dosage: 1?0?1 STRENGTH 5 MG
     Route: 065
     Dates: start: 201808
  19. SPIRONOLACTONE. [Interacting]
     Active Substance: SPIRONOLACTONE
     Indication: CARDIAC DISORDER
     Dosage: 1?0?0 STRENGTH 50 MG,  QD, IN MORNING,??ALSO RECEIVED ON 06?MAY?2011
     Route: 048
     Dates: start: 201808
  20. CARVEDILOL/CARVEDILOL HYDROCHLODRIDE [Interacting]
     Active Substance: CARVEDILOL HYDROCHLORIDE
     Indication: CARDIAC DISORDER
     Dosage: 1?0?1 STRENGTH 25
     Route: 065
     Dates: start: 201808
  21. PROCORALAN [Interacting]
     Active Substance: IVABRADINE
     Indication: CARDIAC DISORDER
     Dosage: 1?0?0 STRENGTH 7.5 MG
     Route: 065
     Dates: start: 201808

REACTIONS (7)
  - Eye movement disorder [Recovered/Resolved]
  - Status epilepticus [Recovering/Resolving]
  - Muscle spasms [Recovered/Resolved]
  - Oculogyric crisis [Recovered/Resolved]
  - Drug interaction [Unknown]
  - Movement disorder [Recovered/Resolved]
  - Seizure [Recovered/Resolved]

NARRATIVE: CASE EVENT DATE: 2020
